FAERS Safety Report 18876023 (Version 1)
Quarter: 2021Q1

REPORT INFORMATION
  Report Type: Spontaneous
  Country: CN (occurrence: CN)
  Receive Date: 20210211
  Receipt Date: 20210211
  Transmission Date: 20210420
  Serious: Yes (Hospitalization)
  Sender: FDA-Public Use
  Company Number: CN-JNJFOC-20210217876

PATIENT
  Age: 82 Year
  Sex: Male
  Weight: 75 kg

DRUGS (2)
  1. XARELTO [Suspect]
     Active Substance: RIVAROXABAN
     Indication: ATRIAL FIBRILLATION
     Dosage: 10 MG, QD
     Route: 048
     Dates: start: 20201030, end: 20201123
  2. XARELTO [Suspect]
     Active Substance: RIVAROXABAN
     Indication: ANTICOAGULANT THERAPY
     Route: 048

REACTIONS (8)
  - Pigmentation disorder [Recovering/Resolving]
  - Prescribed underdose [Unknown]
  - Henoch-Schonlein purpura [Recovering/Resolving]
  - Rash erythematous [Recovering/Resolving]
  - Incorrect dose administered [Unknown]
  - Rash pruritic [Recovering/Resolving]
  - Dry skin [Recovering/Resolving]
  - Petechiae [Recovering/Resolving]

NARRATIVE: CASE EVENT DATE: 20201030
